FAERS Safety Report 5048314-9 (Version None)
Quarter: 2006Q2

REPORT INFORMATION
  Report Type: 
  Country: None (occurrence: None)
  Receive Date: 20060601
  Receipt Date: 20060220
  Transmission Date: 20061013
  Serious: No
  Sender: FDA-Public Use
  Company Number: 2006PV008926

PATIENT
  Age: 59 Year
  Sex: Female
  Weight: 135.1719 kg

DRUGS (4)
  1. BYETTA [Suspect]
     Indication: DIABETES MELLITUS NON-INSULIN-DEPENDENT
     Dosage: 5 MCG;BID;SC
     Route: 058
     Dates: start: 20060217
  2. GLYBURIDE [Concomitant]
  3. LANTUS [Concomitant]
  4. NOVOLOG [Concomitant]

REACTIONS (8)
  - ASTHENIA [None]
  - DIZZINESS [None]
  - FATIGUE [None]
  - FEELING COLD [None]
  - FEELING JITTERY [None]
  - HEADACHE [None]
  - IRRITABILITY [None]
  - NAUSEA [None]
